FAERS Safety Report 16622329 (Version 5)
Quarter: 2020Q1

REPORT INFORMATION
  Report Type: Report from Study
  Country: IT (occurrence: IT)
  Receive Date: 20190723
  Receipt Date: 20200207
  Transmission Date: 20200409
  Serious: Yes (Other)
  Sender: FDA-Public Use
  Company Number: PHHY2018IT050686

PATIENT
  Age: 59 Year
  Sex: Female

DRUGS (16)
  1. TRAMETINIB [Suspect]
     Active Substance: TRAMETINIB
     Dosage: 1 OT, UNK
     Route: 065
     Dates: start: 20181029, end: 20190517
  2. TAFINLAR [Suspect]
     Active Substance: DABRAFENIB MESYLATE
     Indication: METASTATIC MALIGNANT MELANOMA
     Dosage: 300 MG, QD
     Route: 048
     Dates: start: 20171201, end: 20180405
  3. TAFINLAR [Suspect]
     Active Substance: DABRAFENIB MESYLATE
     Dosage: 150 OT, UNK
     Route: 065
     Dates: start: 20180914, end: 20181021
  4. TRAMETINIB [Suspect]
     Active Substance: TRAMETINIB
     Dosage: 1 MG, UNK
     Route: 065
     Dates: start: 20180611, end: 20180906
  5. TAFINLAR [Suspect]
     Active Substance: DABRAFENIB MESYLATE
     Dosage: 150 MG, UNK
     Route: 065
     Dates: start: 20180611, end: 20180906
  6. PANTOPRAZOLE [Concomitant]
     Active Substance: PANTOPRAZOLE
     Indication: CHOLECYSTECTOMY
     Dosage: 20 OT
     Route: 048
     Dates: start: 20190520, end: 20190603
  7. TRAMETINIB [Suspect]
     Active Substance: TRAMETINIB
     Dosage: 1.5 MG, QD
     Route: 048
     Dates: start: 20180511, end: 20180526
  8. TRAMETINIB [Suspect]
     Active Substance: TRAMETINIB
     Dosage: 2 OT, UNK
     Route: 048
     Dates: start: 20180414, end: 20180425
  9. TRAMETINIB [Suspect]
     Active Substance: TRAMETINIB
     Dosage: 1 OT, UNK
     Route: 065
     Dates: start: 20180914, end: 20181021
  10. TAFINLAR [Suspect]
     Active Substance: DABRAFENIB MESYLATE
     Dosage: 200 OT, UNK
     Route: 048
     Dates: start: 20180414, end: 20180426
  11. TRAMETINIB [Suspect]
     Active Substance: TRAMETINIB
     Dosage: 1 OT
     Route: 065
     Dates: start: 20190610, end: 20200109
  12. TAFINLAR [Suspect]
     Active Substance: DABRAFENIB MESYLATE
     Dosage: 200 OT
     Route: 065
     Dates: start: 20180511, end: 20180526
  13. TAFINLAR [Suspect]
     Active Substance: DABRAFENIB MESYLATE
     Dosage: 200 MG, QD
     Route: 048
     Dates: start: 20180406
  14. TAFINLAR [Suspect]
     Active Substance: DABRAFENIB MESYLATE
     Dosage: 150 OT, UNK
     Route: 065
     Dates: start: 20181029, end: 20190517
  15. TRAMETINIB [Suspect]
     Active Substance: TRAMETINIB
     Indication: METASTATIC MALIGNANT MELANOMA
     Dosage: 2 MG, QD
     Route: 048
     Dates: start: 20171201, end: 20180326
  16. TAFINLAR [Suspect]
     Active Substance: DABRAFENIB MESYLATE
     Dosage: 150 OT
     Route: 065
     Dates: start: 20190610, end: 20200109

REACTIONS (20)
  - Ocular discomfort [Recovered/Resolved]
  - Blood alkaline phosphatase increased [Recovered/Resolved]
  - Alanine aminotransferase increased [Recovered/Resolved]
  - Pyrexia [Recovered/Resolved]
  - Blood cholesterol increased [Not Recovered/Not Resolved]
  - Bronchitis [Not Recovered/Not Resolved]
  - Blood lactate dehydrogenase increased [Not Recovered/Not Resolved]
  - Pyrexia [Recovered/Resolved]
  - Oedema peripheral [Recovered/Resolved]
  - Abdominal pain [Recovered/Resolved]
  - Blood alkaline phosphatase increased [Recovered/Resolved]
  - C-reactive protein increased [Not Recovered/Not Resolved]
  - Azotaemia [Recovered/Resolved]
  - Gamma-glutamyltransferase increased [Recovered/Resolved]
  - Azotaemia [Recovered/Resolved]
  - Fatigue [Recovered/Resolved]
  - Hypercreatininaemia [Not Recovered/Not Resolved]
  - Aspartate aminotransferase increased [Recovered/Resolved]
  - Gamma-glutamyltransferase increased [Recovered/Resolved]
  - Red blood cell sedimentation rate increased [Not Recovered/Not Resolved]

NARRATIVE: CASE EVENT DATE: 20180226
